FAERS Safety Report 6388354-0 (Version None)
Quarter: 2009Q4

REPORT INFORMATION
  Report Type: 
  Country: None (occurrence: None)
  Receive Date: 20091005
  Receipt Date: 20090924
  Transmission Date: 20100525
  Serious: Yes (Disabling)
  Sender: FDA-Public Use
  Company Number: PR-MERCK-0805USA02827

PATIENT
  Sex: Female

DRUGS (1)
  1. FOSAMAX [Suspect]
     Route: 048
     Dates: start: 20010101, end: 20060101

REACTIONS (6)
  - INFECTION [None]
  - LOOSE TOOTH [None]
  - MENOPAUSE [None]
  - OSTEONECROSIS [None]
  - TOOTH ABSCESS [None]
  - UTERINE LEIOMYOMA [None]
